FAERS Safety Report 20164393 (Version 1)
Quarter: 2021Q4

REPORT INFORMATION
  Report Type: Spontaneous
  Country: DE (occurrence: DE)
  Receive Date: 20211209
  Receipt Date: 20211209
  Transmission Date: 20220303
  Serious: Yes (Death, Hospitalization, Other)
  Sender: FDA-Public Use
  Company Number: DE-NOVARTISPH-NVSC2021DE280050

PATIENT
  Age: 69 Year
  Sex: Female

DRUGS (4)
  1. DOCETAXEL [Suspect]
     Active Substance: DOCETAXEL
     Indication: Adenocarcinoma
     Dosage: 75 MG/M2, QD (DAY 1)
     Route: 042
     Dates: start: 202012, end: 202102
  2. DOCETAXEL [Suspect]
     Active Substance: DOCETAXEL
     Dosage: UNK (DAY 1)
     Route: 042
     Dates: start: 202012, end: 202102
  3. NINTEDANIB [Suspect]
     Active Substance: NINTEDANIB
     Indication: Adenocarcinoma
     Dosage: 100 MG (1-0-1)
     Route: 048
     Dates: start: 202012
  4. NINTEDANIB [Suspect]
     Active Substance: NINTEDANIB
     Dosage: 200 MG (1-0-1)
     Route: 048
     Dates: start: 202012

REACTIONS (2)
  - Death [Fatal]
  - Neoplasm progression [Unknown]
